FAERS Safety Report 10801165 (Version 3)
Quarter: 2015Q2

REPORT INFORMATION
  Report Type: Spontaneous
  Country: JP (occurrence: JP)
  Receive Date: 20150216
  Receipt Date: 20150421
  Transmission Date: 20150821
  Serious: Yes (Death, Hospitalization)
  Sender: FDA-Public Use
  Company Number: JP-009507513-1502JPN006647

PATIENT
  Age: 80 Year
  Sex: Female

DRUGS (15)
  1. LEVOFLOXACIN. [Concomitant]
     Active Substance: LEVOFLOXACIN
     Indication: URINARY TRACT INFECTION
     Dosage: DAILY DOSAGE UNKNOWN
     Route: 048
     Dates: start: 20131123
  2. LENDORMIN [Concomitant]
     Active Substance: BROTIZOLAM
     Dosage: 0.25 MG, QD
     Route: 048
  3. ETIZOLAM [Concomitant]
     Active Substance: ETIZOLAM
     Dosage: 1 MG, QD
     Route: 048
  4. BLOPRESS [Concomitant]
     Active Substance: CANDESARTAN CILEXETIL
     Dosage: 4 MG, QD
     Route: 048
  5. MAINTATE [Concomitant]
     Active Substance: BISOPROLOL FUMARATE
     Dosage: 5 MG, QD
     Route: 048
  6. LIPITOR [Concomitant]
     Active Substance: ATORVASTATIN CALCIUM
     Dosage: 5 MG, QD
     Route: 048
  7. SELARA [Concomitant]
     Active Substance: EPLERENONE
     Dosage: 50 MG, QD
     Route: 048
  8. XYZAL [Concomitant]
     Active Substance: LEVOCETIRIZINE DIHYDROCHLORIDE
     Dosage: 5 MG, QD
     Route: 048
  9. JANUVIA [Suspect]
     Active Substance: SITAGLIPTIN PHOSPHATE
     Indication: TYPE 2 DIABETES MELLITUS
     Dosage: 50MG PER DAY
     Route: 048
  10. BAYASPIRIN [Concomitant]
     Active Substance: ASPIRIN
     Dosage: 100 MG, QD
     Route: 048
  11. LASIX [Concomitant]
     Active Substance: FUROSEMIDE
     Dosage: 30 MG, QD
     Route: 048
  12. FEBURIC [Concomitant]
     Active Substance: FEBUXOSTAT
     Dosage: 10 MG, QD
     Route: 048
  13. AMARYL [Suspect]
     Active Substance: GLIMEPIRIDE
     Indication: TYPE 2 DIABETES MELLITUS
     Dosage: 2 MG, QD
     Route: 048
  14. TAKEPRON [Concomitant]
     Active Substance: LANSOPRAZOLE
     Dosage: 15 MG, QD
     Route: 048
  15. URSO [Concomitant]
     Active Substance: URSODIOL
     Dosage: 100 MG, TID
     Route: 048

REACTIONS (3)
  - Ischaemic cardiomyopathy [Fatal]
  - Hypoglycaemic encephalopathy [Fatal]
  - Urinary tract infection [Unknown]

NARRATIVE: CASE EVENT DATE: 20131129
